FAERS Safety Report 25069142 (Version 1)
Quarter: 2025Q1

REPORT INFORMATION
  Report Type: Spontaneous
  Country: US (occurrence: None)
  Receive Date: 20250312
  Receipt Date: 20250312
  Transmission Date: 20250409
  Serious: Yes (Hospitalization)
  Sender: FDA-CTU
  Company Number: None

PATIENT
  Sex: Female

DRUGS (4)
  1. REMICADE [Suspect]
     Active Substance: INFLIXIMAB
     Indication: Crohn^s disease
     Route: 042
     Dates: start: 202104
  2. STERILE WATER INJ(10ML/VL) [Concomitant]
  3. NORMAL SALINE FLUSH (5ML) [Concomitant]
  4. SODIUM CHLOR (250ML/BAG) [Concomitant]

REACTIONS (3)
  - Drug ineffective [None]
  - Constipation [None]
  - Hernia repair [None]
